FAERS Safety Report 7201730-9 (Version None)
Quarter: 2010Q4

REPORT INFORMATION
  Report Type: 
  Country: None (occurrence: None)
  Receive Date: 20101229
  Receipt Date: 20101222
  Transmission Date: 20110411
  Serious: Yes (Hospitalization)
  Sender: FDA-Public Use
  Company Number: JP-ROCHE-749450

PATIENT
  Sex: Female

DRUGS (3)
  1. XELODA [Suspect]
     Indication: BREAST CANCER
     Dosage: XELODA 300,
     Route: 048
     Dates: start: 20100916
  2. FAMOTIDINE [Suspect]
     Route: 048
  3. ZOLPIDEM TARTRATE [Suspect]
     Route: 048

REACTIONS (2)
  - ANTI-INSULIN ANTIBODY INCREASED [None]
  - BLOOD GLUCOSE INCREASED [None]
